FAERS Safety Report 19294911 (Version 3)
Quarter: 2025Q2

REPORT INFORMATION
  Report Type: Spontaneous
  Country: IT (occurrence: IT)
  Receive Date: 20210524
  Receipt Date: 20250427
  Transmission Date: 20250717
  Serious: Yes (Other)
  Sender: AUROBINDO
  Company Number: IT-MERCK KGAA-9068439

PATIENT
  Age: 71 Year
  Sex: Male
  Weight: 172 kg

DRUGS (7)
  1. ENALAPRIL [Suspect]
     Active Substance: ENALAPRIL
     Indication: Hypertension
     Dosage: 1 UNK, ONCE A DAY
     Route: 065
  2. ENALAPRIL [Suspect]
     Active Substance: ENALAPRIL
     Dosage: 20 MILLIGRAM, ONCE A DAY
     Route: 065
  3. METFORMIN [Suspect]
     Active Substance: METFORMIN HYDROCHLORIDE
     Indication: Type 2 diabetes mellitus
     Dosage: UNK, ONCE A DAY
     Route: 065
  4. METFORMIN [Suspect]
     Active Substance: METFORMIN HYDROCHLORIDE
     Dosage: 1000 MILLIGRAM, TWO TIMES A DAY
     Route: 065
  5. SIMVASTATIN [Suspect]
     Active Substance: SIMVASTATIN
     Indication: Product used for unknown indication
     Dosage: UNK, ONCE A DAY
     Route: 065
  6. SIMVASTATIN [Suspect]
     Active Substance: SIMVASTATIN
     Dosage: 10 MILLIGRAM, ONCE A DAY
     Route: 065
  7. METFORMIN HYDROCHLORIDE\SITAGLIPTIN [Suspect]
     Active Substance: METFORMIN HYDROCHLORIDE\SITAGLIPTIN
     Indication: Hypoglycaemia
     Dosage: UNK, ONCE A DAY
     Route: 065

REACTIONS (7)
  - Hepatic steatosis [Unknown]
  - Weight decreased [Unknown]
  - Hepatic enzyme decreased [Unknown]
  - Hepatomegaly [Unknown]
  - Haemoglobin abnormal [Unknown]
  - Metabolic dysfunction-associated steatohepatitis [Unknown]
  - Glycosylated haemoglobin increased [Unknown]
